FAERS Safety Report 4390224-4 (Version None)
Quarter: 2004Q3

REPORT INFORMATION
  Report Type: 
  Country: None (occurrence: None)
  Receive Date: 20040706
  Receipt Date: 20040608
  Transmission Date: 20050211
  Serious: Yes (Life-Threatening)
  Sender: FDA-Public Use
  Company Number: JP-BRISTOL-MYERS SQUIBB COMPANY-12608899

PATIENT
  Sex: Male

DRUGS (1)
  1. FUNGIZONE [Suspect]
     Indication: PULMONARY MYCOSIS
     Dosage: INITIATED AT 10 MG ON 12/9/2003, 20 MG FROM 12/10/2003 TO 12/18/2003, 5 MG ON 1/9/2004
     Route: 042
     Dates: start: 20031209, end: 20040109

REACTIONS (2)
  - ACUTE MYOCARDIAL INFARCTION [None]
  - CHEST PAIN [None]
